FAERS Safety Report 7035297-5 (Version None)
Quarter: 2010Q4

REPORT INFORMATION
  Report Type: 
  Country: None (occurrence: None)
  Receive Date: 20101008
  Receipt Date: 20100927
  Transmission Date: 20110411
  Serious: Yes (Hospitalization)
  Sender: FDA-Public Use
  Company Number: B0676795A

PATIENT
  Sex: Female
  Weight: 81 kg

DRUGS (4)
  1. AVANDAMET [Suspect]
     Dates: start: 20070101
  2. FEMARA [Concomitant]
     Indication: BREAST CANCER
  3. TAHOR [Concomitant]
  4. TANAKAN [Concomitant]

REACTIONS (3)
  - CARDIAC DISORDER [None]
  - CARDIAC PACEMAKER INSERTION [None]
  - MALAISE [None]
